FAERS Safety Report 6981463-4 (Version None)
Quarter: 2010Q3

REPORT INFORMATION
  Report Type: 
  Country: None (occurrence: None)
  Receive Date: 20100914
  Receipt Date: 20100831
  Transmission Date: 20110219
  Serious: Yes (Death)
  Sender: FDA-Public Use
  Company Number: US-MYLANLABS-2010S1015924

PATIENT
  Age: 45 Year
  Sex: Female

DRUGS (2)
  1. BACLOFEN [Suspect]
     Indication: COMPLETED SUICIDE
     Route: 065
  2. DULOXETINE [Suspect]
     Indication: COMPLETED SUICIDE
     Route: 065

REACTIONS (3)
  - COMPLETED SUICIDE [None]
  - DRUG TOXICITY [None]
  - INTENTIONAL OVERDOSE [None]
